FAERS Safety Report 17934340 (Version 1)
Quarter: 2020Q2

REPORT INFORMATION
  Report Type: Spontaneous
  Country: US (occurrence: US)
  Receive Date: 20200623
  Receipt Date: 20200623
  Transmission Date: 20200714
  Serious: Yes (Other)
  Sender: FDA-Public Use
  Company Number: None

PATIENT
  Age: 74 Year
  Sex: Female
  Weight: 100.2 kg

DRUGS (22)
  1. REMDESIVIR. [Suspect]
     Active Substance: REMDESIVIR
     Indication: COVID-19
     Dosage: ?          OTHER FREQUENCY:200MG X 1, 100MG/D;?
     Route: 042
     Dates: start: 20200609, end: 20200610
  2. ASPIRIN CHEW 81MG PO DAILY [Concomitant]
     Dates: start: 20200609, end: 20200611
  3. DEXAMETHASONE 6MG IV Q24H [Concomitant]
     Dates: start: 20200617, end: 20200621
  4. HEPARIN 7500 UNITS Q8H [Concomitant]
     Dates: start: 20200611, end: 20200614
  5. LANTUS SUBQ QHS [Concomitant]
     Dates: start: 20200609, end: 20200621
  6. LEVOTHYROXINE 88MCG PO DAILY [Concomitant]
     Dates: start: 20200610, end: 20200621
  7. AZITHROMYCIN 500MG IV DAILY [Concomitant]
     Dates: start: 20200609, end: 20200613
  8. CEFEPIME 1G IV Q24H [Concomitant]
     Dates: start: 20200612, end: 20200621
  9. PIPERACILLIN AND TAZOBACTAM [Concomitant]
     Active Substance: PIPERACILLIN SODIUM\TAZOBACTAM SODIUM
     Dates: start: 20200609, end: 20200612
  10. FUROSEMIDE 40MG AND 80MG IV [Concomitant]
     Dates: start: 20200612, end: 20200612
  11. INSULIN LISPRO SLIDING SCALE 5X/DAY [Concomitant]
     Dates: start: 20200609, end: 20200621
  12. ACETAMINOPHEN 650MG PO Q6H PRN [Concomitant]
     Dates: start: 20200609, end: 20200621
  13. ATORVASTATIN 20MG PO QHS [Concomitant]
     Dates: start: 20200609, end: 20200613
  14. HYDROCHLOROTHIAZIDE 12.5MG PO DAILY [Concomitant]
     Dates: start: 20200609, end: 20200610
  15. PROPOFOL INFUSION [Concomitant]
     Active Substance: PROPOFOL
     Dates: start: 20200610, end: 20200614
  16. ALBUMIN 5% 12.5G IV ONCE [Concomitant]
     Dates: start: 20200610, end: 20200610
  17. AMLODIPINE 10MG PO DAILY [Concomitant]
     Dates: start: 20200609, end: 20200610
  18. NOREPINEPHRINE INFUSION [Concomitant]
     Dates: start: 20200610, end: 20200621
  19. ENOXAPARIN 30MG SUBQ Q12H [Concomitant]
     Dates: start: 20200610, end: 20200611
  20. ENOXAPARIN 40MG SUBQ Q24H [Concomitant]
     Dates: start: 20200609, end: 20200609
  21. FENTANYL INFUSION [Concomitant]
     Active Substance: FENTANYL
     Dates: start: 20200610, end: 20200621
  22. MIDAZOLAM INFUSION [Concomitant]
     Active Substance: MIDAZOLAM HYDROCHLORIDE
     Dates: start: 20200610, end: 20200621

REACTIONS (11)
  - Blood bilirubin increased [None]
  - International normalised ratio increased [None]
  - Aspartate aminotransferase increased [None]
  - Oxygen saturation abnormal [None]
  - Haemodialysis [None]
  - Therapy interrupted [None]
  - Renal impairment [None]
  - Blood creatinine increased [None]
  - Face oedema [None]
  - Device occlusion [None]
  - Alanine aminotransferase increased [None]

NARRATIVE: CASE EVENT DATE: 20200615
